FAERS Safety Report 6657332-6 (Version None)
Quarter: 2010Q1

REPORT INFORMATION
  Report Type: 
  Country: None (occurrence: None)
  Receive Date: 20100325
  Receipt Date: 20100314
  Transmission Date: 20100710
  Serious: Yes (Other)
  Sender: FDA-Public Use
  Company Number: 20097716

PATIENT
  Sex: Male

DRUGS (1)
  1. LIORESAL [Suspect]
     Indication: MUSCLE SPASTICITY
     Dosage: MCG, DAILY, INTRATHECAL
     Route: 037

REACTIONS (15)
  - BLOOD PRESSURE FLUCTUATION [None]
  - CALCULUS BLADDER [None]
  - CYSTITIS [None]
  - DYSPNOEA [None]
  - HYPERAESTHESIA [None]
  - MEDICAL DEVICE COMPLICATION [None]
  - MUSCLE RIGIDITY [None]
  - MUSCLE SPASMS [None]
  - MUSCLE SPASTICITY [None]
  - NEPHROLITHIASIS [None]
  - NO THERAPEUTIC RESPONSE [None]
  - PARAESTHESIA [None]
  - PRURITUS [None]
  - REBOUND EFFECT [None]
  - UNDERDOSE [None]
